FAERS Safety Report 6671961-5 (Version None)
Quarter: 2010Q2

REPORT INFORMATION
  Report Type: 
  Country: None (occurrence: None)
  Receive Date: 20100407
  Receipt Date: 20100329
  Transmission Date: 20101027
  Serious: Yes (Hospitalization, Other)
  Sender: FDA-Public Use
  Company Number: US-AMGEN-QUU382839

PATIENT
  Sex: Female

DRUGS (9)
  1. ENBREL [Suspect]
     Indication: RHEUMATOID ARTHRITIS
     Route: 058
     Dates: start: 20061228
  2. NEXIUM [Concomitant]
  3. LISINOPRIL [Concomitant]
  4. XANAX [Concomitant]
  5. GLUCOSAMINE [Concomitant]
  6. ASPIRIN [Concomitant]
  7. MULTI-VITAMINS [Concomitant]
  8. LIPITOR [Concomitant]
  9. VICODIN [Concomitant]

REACTIONS (22)
  - ANGIOEDEMA [None]
  - ARTHRALGIA [None]
  - BACK PAIN [None]
  - BLOOD PRESSURE INCREASED [None]
  - BURSITIS [None]
  - CELLULITIS [None]
  - DIARRHOEA [None]
  - EYE SWELLING [None]
  - HYPOAESTHESIA [None]
  - INFECTION [None]
  - INJECTION SITE PAIN [None]
  - JOINT SWELLING [None]
  - LATEX ALLERGY [None]
  - LIP SWELLING [None]
  - NECK PAIN [None]
  - OSTEOARTHRITIS [None]
  - PAIN IN EXTREMITY [None]
  - PARAESTHESIA [None]
  - RASH [None]
  - RHEUMATOID ARTHRITIS [None]
  - UPPER RESPIRATORY TRACT INFECTION [None]
  - URTICARIA [None]
